FAERS Safety Report 6301156-6 (Version None)
Quarter: 2009Q3

REPORT INFORMATION
  Report Type: 
  Country: None (occurrence: None)
  Receive Date: 20090807
  Receipt Date: 20090729
  Transmission Date: 20100115
  Serious: Yes (Hospitalization)
  Sender: FDA-Public Use
  Company Number: US-JNJFOC-20090503457

PATIENT
  Sex: Female
  Weight: 89 kg

DRUGS (94)
  1. GOLIMUMAB [Suspect]
     Route: 058
  2. GOLIMUMAB [Suspect]
     Route: 058
  3. GOLIMUMAB [Suspect]
     Route: 058
  4. GOLIMUMAB [Suspect]
     Route: 058
  5. GOLIMUMAB [Suspect]
     Route: 058
  6. GOLIMUMAB [Suspect]
     Route: 058
  7. GOLIMUMAB [Suspect]
     Route: 058
  8. GOLIMUMAB [Suspect]
     Route: 058
  9. GOLIMUMAB [Suspect]
     Route: 058
  10. GOLIMUMAB [Suspect]
     Route: 058
  11. GOLIMUMAB [Suspect]
     Route: 058
  12. GOLIMUMAB [Suspect]
     Route: 058
  13. GOLIMUMAB [Suspect]
     Route: 058
  14. GOLIMUMAB [Suspect]
     Route: 058
  15. GOLIMUMAB [Suspect]
     Route: 058
  16. GOLIMUMAB [Suspect]
     Route: 058
  17. GOLIMUMAB [Suspect]
     Route: 058
  18. GOLIMUMAB [Suspect]
     Route: 058
  19. GOLIMUMAB [Suspect]
     Route: 058
  20. GOLIMUMAB [Suspect]
     Route: 058
  21. GOLIMUMAB [Suspect]
     Route: 058
  22. GOLIMUMAB [Suspect]
     Route: 058
  23. GOLIMUMAB [Suspect]
     Route: 058
  24. GOLIMUMAB [Suspect]
     Route: 058
  25. GOLIMUMAB [Suspect]
     Route: 058
  26. GOLIMUMAB [Suspect]
     Route: 058
  27. GOLIMUMAB [Suspect]
     Route: 058
  28. GOLIMUMAB [Suspect]
     Route: 058
  29. GOLIMUMAB [Suspect]
     Route: 058
  30. GOLIMUMAB [Suspect]
     Route: 058
  31. GOLIMUMAB [Suspect]
     Indication: RHEUMATOID ARTHRITIS
     Route: 058
  32. PLACEBO [Suspect]
     Route: 058
  33. PLACEBO [Suspect]
     Route: 058
  34. PLACEBO [Suspect]
     Route: 058
  35. PLACEBO [Suspect]
     Route: 058
  36. PLACEBO [Suspect]
     Route: 058
  37. PLACEBO [Suspect]
     Indication: RHEUMATOID ARTHRITIS
     Route: 058
  38. METHOTREXATE [Suspect]
     Route: 048
  39. METHOTREXATE [Suspect]
     Route: 048
  40. METHOTREXATE [Suspect]
     Route: 048
  41. METHOTREXATE [Suspect]
     Route: 048
  42. METHOTREXATE [Suspect]
     Route: 048
  43. METHOTREXATE [Suspect]
     Route: 048
  44. METHOTREXATE [Suspect]
     Route: 048
  45. METHOTREXATE [Suspect]
     Route: 048
  46. METHOTREXATE [Suspect]
     Route: 048
  47. METHOTREXATE [Suspect]
     Route: 048
  48. METHOTREXATE [Suspect]
     Route: 048
  49. METHOTREXATE [Suspect]
     Route: 048
  50. METHOTREXATE [Suspect]
     Route: 048
  51. METHOTREXATE [Suspect]
     Route: 048
  52. METHOTREXATE [Suspect]
     Route: 048
  53. METHOTREXATE [Suspect]
     Route: 048
  54. METHOTREXATE [Suspect]
     Route: 048
  55. METHOTREXATE [Suspect]
     Route: 048
  56. METHOTREXATE [Suspect]
     Route: 048
  57. METHOTREXATE [Suspect]
     Route: 048
  58. METHOTREXATE [Suspect]
     Route: 048
  59. METHOTREXATE [Suspect]
     Route: 048
  60. METHOTREXATE [Suspect]
     Route: 048
  61. METHOTREXATE [Suspect]
     Route: 048
  62. METHOTREXATE [Suspect]
     Route: 048
  63. METHOTREXATE [Suspect]
     Route: 048
  64. METHOTREXATE [Suspect]
     Route: 048
  65. METHOTREXATE [Suspect]
     Route: 048
  66. METHOTREXATE [Suspect]
     Route: 048
  67. METHOTREXATE [Suspect]
     Route: 048
  68. METHOTREXATE [Suspect]
     Route: 048
  69. METHOTREXATE [Suspect]
     Route: 048
  70. METHOTREXATE [Suspect]
     Route: 048
  71. METHOTREXATE [Suspect]
     Route: 048
  72. METHOTREXATE [Suspect]
     Route: 048
  73. METHOTREXATE [Suspect]
     Route: 048
  74. METHOTREXATE [Suspect]
     Route: 048
  75. METHOTREXATE [Suspect]
     Route: 048
  76. METHOTREXATE [Suspect]
     Route: 048
  77. METHOTREXATE [Suspect]
     Route: 048
  78. METHOTREXATE [Suspect]
     Route: 048
  79. METHOTREXATE [Suspect]
     Route: 048
  80. METHOTREXATE [Suspect]
     Route: 048
  81. METHOTREXATE [Suspect]
     Indication: RHEUMATOID ARTHRITIS
     Route: 048
  82. LEVOTHYROXINE [Concomitant]
     Route: 048
  83. DILTIAZEM [Concomitant]
     Route: 048
  84. ENALAPRIL MALEATE [Concomitant]
     Route: 048
  85. FOLIC ACID [Concomitant]
     Route: 048
  86. PREDNISONE [Concomitant]
     Route: 048
  87. CLONAZEPAM [Concomitant]
     Route: 048
  88. TRAZODONE HCL [Concomitant]
     Route: 048
  89. BENADRYL [Concomitant]
     Route: 048
  90. POTASSIUM CHLORIDE [Concomitant]
     Route: 048
  91. MODURETIC 5-50 [Concomitant]
     Route: 048
  92. LYRICA [Concomitant]
     Route: 048
  93. METHOTREXATE [Concomitant]
     Route: 048
  94. CEPHALEXIN [Concomitant]
     Route: 048

REACTIONS (3)
  - NEPHROLITHIASIS [None]
  - PYELONEPHRITIS [None]
  - SEPSIS [None]
